FAERS Safety Report 20554735 (Version 1)
Quarter: 2022Q1

REPORT INFORMATION
  Report Type: Spontaneous
  Country: US (occurrence: US)
  Receive Date: 20220304
  Receipt Date: 20220304
  Transmission Date: 20220423
  Serious: Yes (Other)
  Sender: FDA-Public Use
  Company Number: US-PFIZER INC-202200335083

PATIENT
  Age: 83 Year
  Sex: Male
  Weight: 72.57 kg

DRUGS (18)
  1. PAXLOVID [Suspect]
     Active Substance: NIRMATRELVIR\RITONAVIR
     Indication: COVID-19
     Dosage: [PF-07321332 300 MG]/[RITONAVIR 100 MG]; 2X/DAY
     Route: 048
     Dates: start: 20220222
  2. ACETAMINOPHEN [Concomitant]
     Active Substance: ACETAMINOPHEN
     Indication: Arthritis
     Dosage: 650 MG, ONCE A DAY AS NEEDED
  3. ALBUTEROL SULFATE\IPRATROPIUM BROMIDE [Concomitant]
     Active Substance: ALBUTEROL SULFATE\IPRATROPIUM BROMIDE
     Dosage: 3 MG OF THE ALBUTEROL AND 0.5 MG OF BROMIDE, IT IS FOR NEBULIZER MACHINE (UP TO 4 TIMES A DAY)
     Route: 055
  4. ALCLOMETASONE DIPROPIONATE [Concomitant]
     Active Substance: ALCLOMETASONE DIPROPIONATE
     Dosage: 0.05 %, AS NEEDED TWICE A DAY
  5. PRASUGREL [Concomitant]
     Active Substance: PRASUGREL
     Indication: Anticoagulant therapy
     Dosage: 10 MG, 1X/DAY (10 MG, 1 IN MORNING)
  6. HYDROCORTISONE [Concomitant]
     Active Substance: HYDROCORTISONE
     Indication: Psoriasis
     Dosage: 2.5 %, AS NEEDED (SPREAD LIGHTLY, AS NEEDED 2 TO 4 TIMES A DAY)
  7. IRON [Concomitant]
     Active Substance: IRON
     Dosage: 324 MG, DAILY
  8. ISOSORBIDE [Concomitant]
     Active Substance: ISOSORBIDE
     Dosage: 60 MG, ONCE IN MORNING
  9. METOPROLOL [Concomitant]
     Active Substance: METOPROLOL
     Indication: Blood pressure abnormal
     Dosage: 50 MG, ONCE DAILY
  10. NITROGLYCERIN [Concomitant]
     Active Substance: NITROGLYCERIN
     Indication: Angina pectoris
     Dosage: 0.4 MG, AS NEEDED
  11. OMEPRAZOLE [Concomitant]
     Active Substance: OMEPRAZOLE
     Dosage: 20 MG, ONCE A DAY
  12. SELENIUM SULFIDE [Concomitant]
     Active Substance: SELENIUM SULFIDE
     Indication: Psoriasis
     Dosage: UNK
  13. TAMSULOSIN [Concomitant]
     Active Substance: TAMSULOSIN
     Indication: Prostatic disorder
     Dosage: 0.4 MG, 1 AT NIGHT
  14. EZETIMIBE [Concomitant]
     Active Substance: EZETIMIBE
     Dosage: 10 MG, 1 AT BEDTIME
  15. VITAMIN D3 [Concomitant]
     Active Substance: CHOLECALCIFEROL
     Dosage: 2000 IU, ONCE A DAY IN MORNING
  16. PRAVASTATIN SODIUM [Concomitant]
     Active Substance: PRAVASTATIN SODIUM
     Dosage: 20 MG, 1 AT BEDTIME
  17. COENZYME Q10 [Concomitant]
     Active Substance: DIETARY SUPPLEMENT\UBIDECARENONE
     Indication: Cardiac disorder
     Dosage: 200 MG, 1X/DAY
  18. AZITHROMYCIN [Concomitant]
     Active Substance: AZITHROMYCIN
     Indication: COVID-19
     Dosage: 6 PILLS, TAKE 2 THE FIRST DAY AND 1 A DAY FOR 4 DAYS

REACTIONS (4)
  - Haematochezia [Unknown]
  - Dysentery [Unknown]
  - Faeces discoloured [Unknown]
  - Diarrhoea [Unknown]

NARRATIVE: CASE EVENT DATE: 20220201
